FAERS Safety Report 10471633 (Version 2)
Quarter: 2015Q3

REPORT INFORMATION
  Report Type: Report from Study
  Country: US (occurrence: US)
  Receive Date: 20140923
  Receipt Date: 20150903
  Transmission Date: 20151125
  Serious: Yes (Other)
  Sender: FDA-Public Use
  Company Number: PHEH2014US018950

PATIENT
  Sex: Female
  Weight: 63.49 kg

DRUGS (7)
  1. PROAIR HFA [Concomitant]
     Active Substance: ALBUTEROL SULFATE
     Indication: PRODUCT USED FOR UNKNOWN INDICATION
     Route: 065
  2. PERCOCET [Concomitant]
     Active Substance: ACETAMINOPHEN\OXYCODONE HYDROCHLORIDE
     Indication: PRODUCT USED FOR UNKNOWN INDICATION
     Route: 065
  3. VITAMIN D [Concomitant]
     Active Substance: CHOLECALCIFEROL
     Indication: PRODUCT USED FOR UNKNOWN INDICATION
     Route: 065
  4. AMPYRA [Concomitant]
     Active Substance: DALFAMPRIDINE
     Indication: PRODUCT USED FOR UNKNOWN INDICATION
     Route: 065
  5. GILENYA [Suspect]
     Active Substance: FINGOLIMOD HYDROCHLORIDE
     Indication: RELAPSING-REMITTING MULTIPLE SCLEROSIS
     Dosage: 0.5 MG, DAILY
     Route: 048
     Dates: start: 20140925
  6. XANAX [Concomitant]
     Active Substance: ALPRAZOLAM
     Indication: PRODUCT USED FOR UNKNOWN INDICATION
     Route: 065
  7. AMRIX [Concomitant]
     Active Substance: CYCLOBENZAPRINE HYDROCHLORIDE
     Indication: PRODUCT USED FOR UNKNOWN INDICATION
     Route: 065

REACTIONS (50)
  - Gait disturbance [Recovered/Resolved]
  - Affect lability [Unknown]
  - Optic neuritis [Unknown]
  - Depression [Not Recovered/Not Resolved]
  - Hyperacusis [Unknown]
  - Cerebellar syndrome [Unknown]
  - Amnesia [Unknown]
  - Vision blurred [Not Recovered/Not Resolved]
  - Spinal disorder [Not Recovered/Not Resolved]
  - Photophobia [Unknown]
  - Headache [Unknown]
  - Blindness [Unknown]
  - Cognitive disorder [Unknown]
  - Gait spastic [Unknown]
  - Central nervous system lesion [Unknown]
  - Mobility decreased [Unknown]
  - Nervous system disorder [Not Recovered/Not Resolved]
  - Diplopia [Not Recovered/Not Resolved]
  - Cervical radiculopathy [Not Recovered/Not Resolved]
  - Migraine [Unknown]
  - Demyelination [Unknown]
  - Ataxia [Not Recovered/Not Resolved]
  - Sleep disorder [Unknown]
  - Radicular pain [Unknown]
  - Visual impairment [Not Recovered/Not Resolved]
  - Eye pain [Unknown]
  - Relapsing-remitting multiple sclerosis [Unknown]
  - Muscular weakness [Not Recovered/Not Resolved]
  - Coordination abnormal [Not Recovered/Not Resolved]
  - Myoclonus [Unknown]
  - Visual acuity reduced [Unknown]
  - Neuralgia [Not Recovered/Not Resolved]
  - Malaise [Not Recovered/Not Resolved]
  - Maternal exposure during pregnancy [Unknown]
  - Muscle spasticity [Not Recovered/Not Resolved]
  - Myalgia [Unknown]
  - Asthenia [Unknown]
  - Fatigue [Unknown]
  - Abortion spontaneous [Unknown]
  - Neck pain [Recovering/Resolving]
  - Hyperreflexia [Unknown]
  - Pain [Unknown]
  - Back pain [Not Recovered/Not Resolved]
  - Hypoaesthesia [Unknown]
  - Disturbance in attention [Unknown]
  - Paraesthesia [Not Recovered/Not Resolved]
  - Mood swings [Not Recovered/Not Resolved]
  - Stress [Unknown]
  - Wheezing [Unknown]
  - Romberg test positive [Unknown]
